FAERS Safety Report 10523058 (Version 1)
Quarter: 2014Q4

REPORT INFORMATION
  Report Type: Report from Study
  Country: NL (occurrence: NL)
  Receive Date: 20141016
  Receipt Date: 20141016
  Transmission Date: 20150528
  Serious: Yes (Hospitalization)
  Sender: FDA-Public Use
  Company Number: NL-ASTRAZENECA-2014SE76568

PATIENT
  Age: 79 Year
  Sex: Male

DRUGS (11)
  1. TICAGRELOR [Suspect]
     Active Substance: TICAGRELOR
     Indication: ACUTE CORONARY SYNDROME
     Route: 048
  2. ATORVASTATINE [Concomitant]
     Active Substance: ATORVASTATIN
     Dosage: 20
  3. TICAGRELOR [Suspect]
     Active Substance: TICAGRELOR
     Indication: ACUTE CORONARY SYNDROME
     Dosage: MAINTANENCE THERAPY
     Route: 048
  4. ASPIRIN (NON-AZ PRODUCT) [Suspect]
     Active Substance: ASPIRIN
     Indication: ACUTE CORONARY SYNDROME
     Dosage: MAINTANENCE THERAPY - 100 MG DAILY
     Route: 048
  5. ASPIRIN (NON-AZ PRODUCT) [Suspect]
     Active Substance: ASPIRIN
     Indication: ACUTE CORONARY SYNDROME
     Route: 048
  6. JANUMET [Concomitant]
     Active Substance: METFORMIN HYDROCHLORIDE\SITAGLIPTIN PHOSPHATE
     Dosage: 50
  7. ASCAL [Concomitant]
     Active Substance: CARBASALATE
     Dosage: 100
  8. PERINDOPRIL [Concomitant]
     Active Substance: PERINDOPRIL
     Dosage: 4
  9. BISOPROLOL [Concomitant]
     Active Substance: BISOPROLOL
     Dosage: 2.5
  10. STUDY PROCEDURE [Suspect]
     Active Substance: INVESTIGATIONAL PRODUCT
     Indication: ACUTE CORONARY SYNDROME
     Route: 065
  11. PANTOPRAZOLE [Concomitant]
     Active Substance: PANTOPRAZOLE SODIUM
     Dosage: 40

REACTIONS (1)
  - Transient ischaemic attack [Recovered/Resolved]

NARRATIVE: CASE EVENT DATE: 20140708
